FAERS Safety Report 15350283 (Version 2)
Quarter: 2019Q1

REPORT INFORMATION
  Report Type: Report from Study
  Country: None (occurrence: US)
  Receive Date: 20180905
  Receipt Date: 20190309
  Transmission Date: 20190417
  Serious: Yes (Hospitalization, Other)
  Sender: FDA-Public Use
  Company Number: US-ABBVIE-18K-163-2301037-00

PATIENT
  Age: 54 Year
  Sex: Female

DRUGS (3)
  1. HUMIRA [Suspect]
     Active Substance: ADALIMUMAB
     Indication: PSORIATIC ARTHROPATHY
     Route: 058
  2. HUMIRA [Suspect]
     Active Substance: ADALIMUMAB
     Dosage: INCREASED HUMIRA TO WEEKLY
     Route: 058
  3. METHOTREXATE. [Suspect]
     Active Substance: METHOTREXATE
     Indication: PRODUCT USED FOR UNKNOWN INDICATION
     Route: 065

REACTIONS (11)
  - Influenza [Recovered/Resolved]
  - Injection site bruising [Recovering/Resolving]
  - Choking [Unknown]
  - Paraesthesia [Unknown]
  - Tongue biting [Unknown]
  - Cerebrovascular accident [Recovering/Resolving]
  - Hepatic enzyme increased [Unknown]
  - Loss of consciousness [Recovering/Resolving]
  - Memory impairment [Unknown]
  - Hypertension [Unknown]
  - Injection site pain [Recovering/Resolving]

NARRATIVE: CASE EVENT DATE: 201802
